FAERS Safety Report 7027422 (Version 4)
Quarter: 2013Q2

REPORT INFORMATION
  Report Type: Spontaneous
  Country: US (occurrence: US)
  Receive Date: 20090618
  Receipt Date: 20130522
  Transmission Date: 20140414
  Serious: Yes (Other)
  Sender: FDA-Public Use
  Company Number: US-ELI_LILLY_AND_COMPANY-US200906003211

PATIENT
  Age: 70 Year
  Sex: Male

DRUGS (7)
  1. HUMALOG LISPRO [Suspect]
     Indication: TYPE 1 DIABETES MELLITUS
     Dosage: 20 U, PRN
     Dates: start: 2004
  2. HUMALOG LISPRO [Suspect]
     Dosage: UNK UNK, TID
  3. HUMALOG 25% LISPRO, 75% NPL [Suspect]
     Indication: TYPE 1 DIABETES MELLITUS
     Dosage: UNK, UNK
  4. HUMALOG 50% LISPRO, 50% NPL [Suspect]
     Indication: TYPE 1 DIABETES MELLITUS
     Dosage: UNK, UNK
  5. RAMIPRIL [Concomitant]
  6. METFORMIN [Concomitant]
  7. GLUCOPHAGE [Concomitant]

REACTIONS (18)
  - Loss of consciousness [Recovered/Resolved]
  - Blindness transient [Recovered/Resolved]
  - Renal failure chronic [Not Recovered/Not Resolved]
  - Prostate cancer [Recovered/Resolved]
  - Blood glucose increased [Recovered/Resolved]
  - Blood glucose decreased [Recovered/Resolved]
  - Urinary incontinence [Unknown]
  - Haemorrhage [Unknown]
  - Osteoporosis [Unknown]
  - Anaemia [Not Recovered/Not Resolved]
  - Prostatomegaly [Unknown]
  - Catheter site haemorrhage [Unknown]
  - Pancreatic disorder [Unknown]
  - Underweight [Unknown]
  - Visual acuity reduced [Not Recovered/Not Resolved]
  - Maculopathy [Not Recovered/Not Resolved]
  - Cataract [Not Recovered/Not Resolved]
  - Retinopathy [Not Recovered/Not Resolved]
